FAERS Safety Report 6316503 (Version 5)
Quarter: 2013Q2

REPORT INFORMATION
  Report Type: Report from Study
  Country: DE (occurrence: DE)
  Receive Date: 20070521
  Receipt Date: 20130424
  Transmission Date: 20140414
  Serious: Yes (Other)
  Sender: FDA-Public Use
  Company Number: PHHO2007DE08053

PATIENT
  Age: 70 Year
  Sex: Female

DRUGS (11)
  1. ZOLEDRONATE [Suspect]
     Indication: METASTASES TO BONE
     Dosage: 4 MG, ONCE A MONTH
     Route: 042
     Dates: start: 20060908, end: 20070404
  2. CLINDAMYCIN [Suspect]
     Dates: end: 20070413
  3. CLINDAMYCIN [Suspect]
     Dosage: UNK, NO TREATMENT
  4. CLINDAMYCIN [Suspect]
     Route: 042
  5. CALCIUM [Concomitant]
     Indication: METASTASES TO BONE
     Dosage: 500 MG, QD
     Route: 048
     Dates: start: 20060908, end: 20070404
  6. VITAMIN D [Concomitant]
     Indication: METASTASES TO BONE
     Dosage: 400-500 IU
     Route: 048
     Dates: start: 20060908, end: 20070404
  7. TAVEGIL [Concomitant]
  8. PACLITAXEL [Concomitant]
     Indication: BREAST CANCER
     Dosage: UNK
  9. DEXAMETHASONE [Concomitant]
     Dosage: UNK
  10. KEVATRIL [Concomitant]
     Dosage: UNK
  11. RANITIDIN [Concomitant]
     Dosage: UNK

REACTIONS (6)
  - Osteonecrosis of jaw [Recovered/Resolved]
  - Wound infection [Recovered/Resolved]
  - Impaired healing [Recovered/Resolved]
  - Infection [Recovered/Resolved]
  - Nausea [Recovered/Resolved]
  - Gastrointestinal pain [Recovered/Resolved]
